FAERS Safety Report 5644898-8 (Version None)
Quarter: 2008Q1

REPORT INFORMATION
  Report Type: 
  Country: None (occurrence: None)
  Receive Date: 20080229
  Receipt Date: 20071015
  Transmission Date: 20080703
  Serious: No
  Sender: FDA-Public Use
  Company Number: A0687545A

PATIENT
  Age: 38 Year
  Sex: Male

DRUGS (3)
  1. VALTREX [Suspect]
     Indication: HERPES ZOSTER
     Dosage: 1G THREE TIMES PER DAY
     Route: 048
     Dates: start: 20071009
  2. TYLENOL (CAPLET) [Concomitant]
  3. NO CONCURRENT MEDICATION [Concomitant]

REACTIONS (3)
  - HEADACHE [None]
  - NAUSEA [None]
  - OVERDOSE [None]
